FAERS Safety Report 10670534 (Version 1)
Quarter: 2014Q4

REPORT INFORMATION
  Report Type: Report from Study
  Country: US (occurrence: US)
  Receive Date: 20141223
  Receipt Date: 20141223
  Transmission Date: 20150529
  Serious: Yes (Other)
  Sender: FDA-Public Use
  Company Number: PHEH2014US024812

PATIENT
  Sex: Male

DRUGS (1)
  1. ZORTRESS [Suspect]
     Active Substance: EVEROLIMUS
     Indication: RENAL TRANSPLANT
     Dosage: 5 DF, BID
     Route: 048

REACTIONS (4)
  - Polycythaemia [Unknown]
  - Neuropathy peripheral [Unknown]
  - Cataract [Unknown]
  - Herpes zoster [Unknown]
